FAERS Safety Report 8342663-4 (Version None)
Quarter: 2012Q2

REPORT INFORMATION
  Report Type: 
  Country: None (occurrence: None)
  Receive Date: 20120508
  Receipt Date: 20120427
  Transmission Date: 20120825
  Serious: No
  Sender: FDA-Public Use
  Company Number: US-BIOGENIDEC-2012BI014673

PATIENT
  Age: 57 Year
  Sex: Female

DRUGS (1)
  1. AVONEX [Suspect]
     Indication: MULTIPLE SCLEROSIS
     Route: 030
     Dates: start: 20120425

REACTIONS (7)
  - MIGRAINE [None]
  - BLOOD PRESSURE INCREASED [None]
  - PYREXIA [None]
  - PALPITATIONS [None]
  - VOMITING [None]
  - HEART RATE INCREASED [None]
  - INSOMNIA [None]
